FAERS Safety Report 6709348-9 (Version None)
Quarter: 2010Q2

REPORT INFORMATION
  Report Type: 
  Country: None (occurrence: None)
  Receive Date: 20100429
  Receipt Date: 20100413
  Transmission Date: 20101027
  Serious: Yes (Hospitalization)
  Sender: FDA-Public Use
  Company Number: CTI_01159_2010

PATIENT
  Age: 19 Month
  Sex: Female

DRUGS (12)
  1. SPECTRACEF [Suspect]
     Indication: OTITIS MEDIA
     Dosage: 99 MG ORAL
     Route: 048
     Dates: start: 20091217, end: 20091219
  2. PHENOBAL /00023201/ (PHENOBAL PHENOBARBITAL) (NOT SPECIFIED) [Suspect]
     Indication: CONVULSION
     Dosage: 50 MG ORAL
     Route: 048
     Dates: start: 20091202, end: 20091219
  3. RIVOTRIL (RIVOTRIL (CLONAZEPAM) (NOT SPECIFIED) [Suspect]
     Indication: CONVULSION
     Dosage: 0.5 MG, ORAL
     Route: 048
     Dates: start: 20091211, end: 20091220
  4. DIAZEPAM [Concomitant]
  5. AMOXICILLIN HYDRATE [Concomitant]
  6. L-CARBOCISTEINE [Concomitant]
  7. AMBROXOL HYDROCHLORIDE [Concomitant]
  8. GLUCOSE/SODIUM CHLORIDE/POTASSIUM CHLORIDE/SODIUM LACTATE [Concomitant]
  9. OSELTAMIVIR PHOSPHATE [Concomitant]
  10. LEVOCARNITINE CHLORIDE [Concomitant]
  11. ACETAMINOPHEN [Concomitant]
  12. TRICLOFOS SODIUM [Concomitant]

REACTIONS (5)
  - ENCEPHALOPATHY [None]
  - FEBRILE CONVULSION [None]
  - OTITIS MEDIA [None]
  - STEVENS-JOHNSON SYNDROME [None]
  - VIRAL RASH [None]
